FAERS Safety Report 19992871 (Version 2)
Quarter: 2022Q1

REPORT INFORMATION
  Report Type: Spontaneous
  Country: US (occurrence: US)
  Receive Date: 20211026
  Receipt Date: 20220210
  Transmission Date: 20220424
  Serious: No
  Sender: FDA-Public Use
  Company Number: US-SA-SAC20211020000231

PATIENT
  Age: 42 Year
  Sex: Female

DRUGS (7)
  1. DUPIXENT [Suspect]
     Active Substance: DUPILUMAB
     Indication: Nasal polyps
     Dosage: 300 MG, QOW
     Route: 058
     Dates: start: 20200206
  2. DUPIXENT [Suspect]
     Active Substance: DUPILUMAB
     Indication: Asthma
  3. LORATADINE [Concomitant]
     Active Substance: LORATADINE
     Dosage: 10 MG
  4. ELMIRON [Concomitant]
     Active Substance: PENTOSAN POLYSULFATE SODIUM
     Dosage: 100 MG
  5. ZYRTEC [Concomitant]
     Active Substance: CETIRIZINE HYDROCHLORIDE
     Dosage: 10 MG
  6. SINGULAIR [Concomitant]
     Active Substance: MONTELUKAST SODIUM
  7. ARMOUR THYROID [Concomitant]
     Active Substance: THYROID, PORCINE

REACTIONS (5)
  - Asthma [Not Recovered/Not Resolved]
  - COVID-19 [Recovered/Resolved]
  - SARS-CoV-2 test positive [Recovered/Resolved]
  - Asthma [Unknown]
  - Product use in unapproved indication [Unknown]

NARRATIVE: CASE EVENT DATE: 20211220
